FAERS Safety Report 14545153 (Version 1)
Quarter: 2018Q1

REPORT INFORMATION
  Report Type: Spontaneous
  Country: DE (occurrence: DE)
  Receive Date: 20180218
  Receipt Date: 20180218
  Transmission Date: 20180509
  Serious: Yes (Other)
  Sender: FDA-Public Use
  Company Number: DE-PERRIGO-18DE001344

PATIENT
  Age: 12 Year
  Sex: Male

DRUGS (1)
  1. TESTOSTERONE ENANTHATE. [Suspect]
     Active Substance: TESTOSTERONE ENANTHATE
     Indication: GROWTH HORMONE DEFICIENCY
     Dosage: 125 MG, SINGLE
     Route: 030

REACTIONS (1)
  - Priapism [Recovered/Resolved]
